FAERS Safety Report 21340944 (Version 2)
Quarter: 2022Q4

REPORT INFORMATION
  Report Type: Spontaneous
  Country: US (occurrence: US)
  Receive Date: 20220916
  Receipt Date: 20221019
  Transmission Date: 20230113
  Serious: No
  Sender: FDA-Public Use
  Company Number: US-JNJFOC-20220911187

PATIENT
  Age: 73 Year
  Sex: Female
  Weight: 59 kg

DRUGS (1)
  1. TREMFYA [Suspect]
     Active Substance: GUSELKUMAB
     Indication: Psoriasis
     Route: 058

REACTIONS (4)
  - Product dose omission issue [Unknown]
  - Adverse event [Unknown]
  - Accidental exposure to product [Unknown]
  - Product quality issue [Unknown]

NARRATIVE: CASE EVENT DATE: 20220905
